FAERS Safety Report 7893865-2 (Version None)
Quarter: 2011Q4

REPORT INFORMATION
  Report Type: 
  Country: None (occurrence: None)
  Receive Date: 20111104
  Receipt Date: 20111027
  Transmission Date: 20120403
  Serious: Yes (Hospitalization)
  Sender: FDA-Public Use
  Company Number: PHHO2010PL13093

PATIENT
  Sex: Female
  Weight: 61 kg

DRUGS (2)
  1. TASIGNA [Suspect]
     Dosage: 400 MG, BID
     Route: 048
     Dates: start: 20080808
  2. TASIGNA [Suspect]
     Indication: CHRONIC MYELOID LEUKAEMIA
     Dosage: 400 MG, BID
     Route: 048
     Dates: start: 20080728

REACTIONS (6)
  - ISCHAEMIC STROKE [None]
  - HEMIPARESIS [None]
  - CAROTID ARTERIOSCLEROSIS [None]
  - ARTERIOSCLEROSIS [None]
  - HYPERCHOLESTEROLAEMIA [None]
  - HEMIPLEGIA [None]
